FAERS Safety Report 14917259 (Version 1)
Quarter: 2018Q2

REPORT INFORMATION
  Report Type: Spontaneous
  Country: US (occurrence: US)
  Receive Date: 20180521
  Receipt Date: 20180521
  Transmission Date: 20180711
  Serious: Yes (Other)
  Sender: FDA-Public Use
  Company Number: US-AMGEN-USASP2018066853

PATIENT

DRUGS (2)
  1. PROCRIT [Suspect]
     Active Substance: ERYTHROPOIETIN
     Indication: BLOOD TEST ABNORMAL
     Dosage: UNK
     Route: 065
  2. PROCRIT [Suspect]
     Active Substance: ERYTHROPOIETIN
     Indication: RENAL DISORDER

REACTIONS (2)
  - Cataract [Not Recovered/Not Resolved]
  - Fall [Unknown]
